FAERS Safety Report 9449894 (Version 1)
Quarter: 2013Q3

REPORT INFORMATION
  Report Type: Spontaneous
  Country: PR (occurrence: PR)
  Receive Date: 20130809
  Receipt Date: 20130809
  Transmission Date: 20140515
  Serious: Yes (Other)
  Sender: FDA-Public Use
  Company Number: PR-009507513-1308USA000719

PATIENT
  Age: 65 Year
  Sex: Female

DRUGS (2)
  1. REBETOL [Suspect]
     Dosage: UNK
     Route: 048
     Dates: start: 20130628
  2. PEGINTERFERON ALFA-2B [Suspect]
     Dosage: REDIPEN
     Dates: start: 20130628

REACTIONS (1)
  - Blood electrolytes decreased [Unknown]
